FAERS Safety Report 23700113 (Version 1)
Quarter: 2024Q2

REPORT INFORMATION
  Report Type: Spontaneous
  Country: US (occurrence: US)
  Receive Date: 20240403
  Receipt Date: 20240403
  Transmission Date: 20240716
  Serious: Yes (Hospitalization, Other)
  Sender: FDA-Public Use
  Company Number: US-TEVA-VS-3176152

PATIENT
  Age: 67 Year
  Sex: Female

DRUGS (5)
  1. OXALIPLATIN [Suspect]
     Active Substance: OXALIPLATIN
     Indication: Pancreatic carcinoma metastatic
     Dosage: PART OF FOLFIRINOX REGIMEN
     Route: 065
  2. APIXABAN [Suspect]
     Active Substance: APIXABAN
     Indication: Pulmonary embolism
     Route: 065
  3. LEUCOVORIN [Suspect]
     Active Substance: LEUCOVORIN\LEUCOVORIN CALCIUM
     Indication: Pancreatic carcinoma metastatic
     Dosage: PART OF FOLFIRINOX REGIMEN
     Route: 065
  4. FLUOROURACIL [Suspect]
     Active Substance: FLUOROURACIL
     Indication: Pancreatic carcinoma metastatic
     Dosage: PART OF FOLFIRINOX REGIMEN
     Route: 065
  5. IRINOTECAN [Suspect]
     Active Substance: IRINOTECAN
     Indication: Pancreatic carcinoma metastatic
     Dosage: PART OF FOLFIRINOX REGIMEN
     Route: 065

REACTIONS (2)
  - Thrombocytopenia [Recovered/Resolved]
  - Drug ineffective [Unknown]
